FAERS Safety Report 9043884 (Version 1)
Quarter: 2013Q1

REPORT INFORMATION
  Report Type: Report from Study
  Country: US (occurrence: US)
  Receive Date: 20130130
  Receipt Date: 20130130
  Transmission Date: 20140127
  Serious: No
  Sender: FDA-Public Use
  Company Number: US-ABBOTT-12P-163-0947018-00

PATIENT
  Age: 65 Year
  Sex: Female

DRUGS (3)
  1. HUMIRA 40 MG/0.8 ML PEN [Suspect]
     Indication: PSORIASIS
     Dosage: INJECT TWO PENS DAY ONE
     Route: 058
     Dates: start: 201205
  2. HUMIRA 40 MG/0.8 ML PEN [Suspect]
     Dosage: DAY EIGHT
     Route: 058
     Dates: start: 201206
  3. HUMIRA 40 MG/0.8 ML PEN [Suspect]
     Dosage: DAY 22
     Route: 058
     Dates: start: 201206

REACTIONS (2)
  - Fatigue [Unknown]
  - Injection site pain [Unknown]
